FAERS Safety Report 19896859 (Version 1)
Quarter: 2021Q3

REPORT INFORMATION
  Report Type: Spontaneous
  Country: US (occurrence: US)
  Receive Date: 20210930
  Receipt Date: 20210930
  Transmission Date: 20211014
  Serious: No
  Sender: FDA-Public Use
  Company Number: US-ASTRAZENECA-2021A739652

PATIENT
  Age: 839 Month
  Sex: Male
  Weight: 99.8 kg

DRUGS (1)
  1. FARXIGA [Suspect]
     Active Substance: DAPAGLIFLOZIN PROPANEDIOL
     Indication: TYPE 2 DIABETES MELLITUS
     Route: 048
     Dates: start: 202108, end: 20210920

REACTIONS (13)
  - Chills [Recovered/Resolved]
  - Prostatomegaly [Unknown]
  - Micturition urgency [Not Recovered/Not Resolved]
  - Urinary tract infection [Unknown]
  - Bladder pain [Not Recovered/Not Resolved]
  - Diarrhoea [Recovered/Resolved]
  - Dysuria [Not Recovered/Not Resolved]
  - Renal disorder [Unknown]
  - Urine flow decreased [Not Recovered/Not Resolved]
  - Arthralgia [Recovered/Resolved]
  - Prostatic disorder [Not Recovered/Not Resolved]
  - Pyrexia [Recovered/Resolved]
  - Insomnia [Unknown]

NARRATIVE: CASE EVENT DATE: 202109
